FAERS Safety Report 20595017 (Version 1)
Quarter: 2022Q1

REPORT INFORMATION
  Report Type: Spontaneous
  Country: DE (occurrence: DE)
  Receive Date: 20220315
  Receipt Date: 20220315
  Transmission Date: 20220424
  Serious: Yes (Other)
  Sender: FDA-Public Use
  Company Number: DE-NOVARTISPH-NVSC2022DE059250

PATIENT
  Sex: Female

DRUGS (1)
  1. SALBUHEXAL [Suspect]
     Active Substance: ALBUTEROL
     Indication: Asthma
     Dosage: AS NEEDED
     Route: 065

REACTIONS (1)
  - Arrhythmia [Unknown]
